FAERS Safety Report 8432486-X (Version None)
Quarter: 2012Q2

REPORT INFORMATION
  Report Type: 
  Country: None (occurrence: None)
  Receive Date: 20120613
  Receipt Date: 20120607
  Transmission Date: 20120825
  Serious: Yes (Hospitalization)
  Sender: FDA-Public Use
  Company Number: PHHO2012US008621

PATIENT
  Sex: Female
  Weight: 24.6 kg

DRUGS (4)
  1. PLACEBO [Suspect]
     Indication: TUBEROUS SCLEROSIS
     Dosage: 5 MG QD ALTERNATING 10 MG QD
     Dates: start: 20120322, end: 20120603
  2. RAD001 [Suspect]
     Indication: TUBEROUS SCLEROSIS
     Dosage: UNK
  3. AFINITOR [Suspect]
     Indication: TUBEROUS SCLEROSIS
     Dosage: 5 MG QD ALTERNATING 10 MG QD
     Dates: start: 20120322, end: 20120603
  4. BLINDED NO TREATMENT RECEIVED [Suspect]
     Indication: TUBEROUS SCLEROSIS
     Dosage: 5 MG QD ALTERNATING 10 MG QD
     Dates: start: 20120322, end: 20120603

REACTIONS (2)
  - PYELONEPHRITIS [None]
  - SEPSIS [None]
